FAERS Safety Report 12737853 (Version 1)
Quarter: 2016Q3

REPORT INFORMATION
  Report Type: Spontaneous
  Country: NL (occurrence: NL)
  Receive Date: 20160913
  Receipt Date: 20160913
  Transmission Date: 20161109
  Serious: Yes (Death)
  Sender: FDA-Public Use
  Company Number: NL-PFIZER INC-2016425452

PATIENT
  Age: 71 Year
  Sex: Male

DRUGS (3)
  1. ANIDULAFUNGIN [Concomitant]
     Active Substance: ANIDULAFUNGIN
     Indication: ASPERGILLUS INFECTION
     Dosage: UNK
  2. MEROPENEM. [Concomitant]
     Active Substance: MEROPENEM
     Indication: ASPERGILLUS INFECTION
     Dosage: UNK
  3. VORICONAZOLE. [Suspect]
     Active Substance: VORICONAZOLE
     Indication: ASPERGILLUS INFECTION
     Dosage: UNK

REACTIONS (2)
  - Pathogen resistance [Fatal]
  - Drug ineffective [Fatal]
